FAERS Safety Report 25378330 (Version 3)
Quarter: 2025Q3

REPORT INFORMATION
  Report Type: Report from Study
  Country: US (occurrence: US)
  Receive Date: 20250530
  Receipt Date: 20250708
  Transmission Date: 20251021
  Serious: No
  Sender: SUNOVION
  Company Number: US-SMPA-2025SPA005707AA

PATIENT

DRUGS (21)
  1. ORGOVYX [Suspect]
     Active Substance: RELUGOLIX
     Indication: Prostate cancer
     Dosage: 120 MG, QD
     Route: 048
     Dates: start: 20250505
  2. ABIRATERONE ACETATE [Suspect]
     Active Substance: ABIRATERONE ACETATE
     Indication: Back pain
     Route: 065
  3. HYDROCODONE BITARTRATE AND ACETAMINOPHEN [Concomitant]
     Active Substance: ACETAMINOPHEN\HYDROCODONE BITARTRATE
     Route: 048
  4. LOSARTAN POTASSIUM [Concomitant]
     Active Substance: LOSARTAN POTASSIUM
     Route: 048
  5. LUPRON DEPOT [Concomitant]
     Active Substance: LEUPROLIDE ACETATE
     Route: 030
  6. OXYBUTYNIN CHLORIDE [Concomitant]
     Active Substance: OXYBUTYNIN CHLORIDE
     Route: 048
  7. PREDNISONE [Concomitant]
     Active Substance: PREDNISONE
     Route: 048
  8. TAMSULOSIN HYDROCHLORIDE [Concomitant]
     Active Substance: TAMSULOSIN HYDROCHLORIDE
     Route: 048
  9. AMLODIPINE BESYLATE [Concomitant]
     Active Substance: AMLODIPINE BESYLATE
     Route: 048
  10. BUPROPION HYDROCHLORIDE [Concomitant]
     Active Substance: BUPROPION HYDROCHLORIDE
     Route: 048
  11. CHLORTHALIDONE [Concomitant]
     Active Substance: CHLORTHALIDONE
     Route: 048
  12. ERLEADA [Concomitant]
     Active Substance: APALUTAMIDE
     Route: 048
  13. FINASTERIDE [Concomitant]
     Active Substance: FINASTERIDE
     Route: 048
  14. FOLIC ACID [Concomitant]
     Active Substance: FOLIC ACID
     Route: 048
  15. OMEPRAZOLE [Concomitant]
     Active Substance: OMEPRAZOLE
     Route: 065
  16. VITAMIN B12 [Concomitant]
     Active Substance: CYANOCOBALAMIN
     Route: 065
  17. VITAMIN B6 [Concomitant]
     Active Substance: PYRIDOXINE HYDROCHLORIDE
     Route: 065
  18. VITAMIN D3 [Concomitant]
     Active Substance: CHOLECALCIFEROL
     Route: 065
  19. VITAMIN C [Concomitant]
     Active Substance: ASCORBIC ACID
     Route: 065
  20. CALCIUM ASCORBATE [Concomitant]
     Active Substance: CALCIUM ASCORBATE
     Route: 065
  21. NORCO [Concomitant]
     Active Substance: ACETAMINOPHEN\HYDROCODONE BITARTRATE
     Route: 065

REACTIONS (8)
  - Condition aggravated [Unknown]
  - Back disorder [Unknown]
  - Dry mouth [Unknown]
  - Mobility decreased [Unknown]
  - Thirst [Unknown]
  - Pruritus [Unknown]
  - Back pain [Recovering/Resolving]
  - Off label use [Unknown]
